FAERS Safety Report 12443452 (Version 1)
Quarter: 2016Q2

REPORT INFORMATION
  Report Type: Other
  Country: DE (occurrence: DE)
  Receive Date: 20160607
  Receipt Date: 20160607
  Transmission Date: 20160815
  Serious: Yes (Life-Threatening, Hospitalization)
  Sender: FDA-Public Use
  Company Number: DE-PFM-DE-2016-1774

PATIENT

DRUGS (2)
  1. CISPLATIN. [Suspect]
     Active Substance: CISPLATIN
     Indication: BRONCHIAL CARCINOMA
     Dosage: 65.78 MG, ONE DAY
     Route: 042
     Dates: start: 20160512
  2. VINORELBINE INN [Suspect]
     Active Substance: VINORELBINE TARTRATE
     Indication: BRONCHIAL CARCINOMA
     Dosage: 24.67 MG, ONE DAY
     Route: 042
     Dates: start: 20160512

REACTIONS (3)
  - Respiratory arrest [Not Recovered/Not Resolved]
  - Leukopenia [Unknown]
  - Cardiac arrest [Not Recovered/Not Resolved]

NARRATIVE: CASE EVENT DATE: 20160518
